FAERS Safety Report 7707607-4 (Version None)
Quarter: 2011Q3

REPORT INFORMATION
  Report Type: 
  Country: None (occurrence: None)
  Receive Date: 20110824
  Receipt Date: 20110812
  Transmission Date: 20111222
  Serious: Yes (Hospitalization)
  Sender: FDA-Public Use
  Company Number: ES-JNJFOC-20110806402

PATIENT
  Age: 25 Year
  Sex: Female

DRUGS (4)
  1. ACETAMINOPHEN [Suspect]
  2. ACETAMINOPHEN [Suspect]
     Indication: HEADACHE
     Dosage: DAILY FOR 2 DAYS
  3. METOCLOPRAMIDE [Concomitant]
  4. BISACODYL [Concomitant]

REACTIONS (2)
  - EOSINOPHILIA [None]
  - LIVER INJURY [None]
